FAERS Safety Report 15285525 (Version 1)
Quarter: 2018Q3

REPORT INFORMATION
  Report Type: Spontaneous
  Country: GB (occurrence: GB)
  Receive Date: 20180816
  Receipt Date: 20180816
  Transmission Date: 20181010
  Serious: Yes (Other)
  Sender: FDA-Public Use
  Company Number: GB-TEVA-2018-GB-942495

PATIENT
  Age: 34 Year
  Sex: Male
  Weight: 75 kg

DRUGS (1)
  1. DOXYCYCLINE. [Suspect]
     Active Substance: DOXYCYCLINE
     Indication: EPIDIDYMITIS
     Dosage: 200 MILLIGRAM DAILY;
     Route: 048
     Dates: start: 20180615, end: 20180618

REACTIONS (2)
  - Myalgia [Recovered/Resolved]
  - Rhabdomyolysis [Recovered/Resolved]
